FAERS Safety Report 5575585-2 (Version None)
Quarter: 2007Q4

REPORT INFORMATION
  Report Type: 
  Country: None (occurrence: None)
  Receive Date: 20071226
  Receipt Date: 20071114
  Transmission Date: 20080405
  Serious: Yes (Death)
  Sender: FDA-Public Use
  Company Number: AE-1107-407

PATIENT
  Age: 43 Year
  Sex: Female

DRUGS (9)
  1. LIDODERM [Suspect]
     Indication: BURSITIS
     Dosage: 50-80 PATCHES
  2. LIDODERM [Suspect]
     Indication: INTERVERTEBRAL DISC DEGENERATION
     Dosage: 50-80 PATCHES
  3. HYDROCODONE BITARTRATE [Concomitant]
  4. CHANTIX [Concomitant]
  5. KLONOPIN [Concomitant]
  6. PROTONIX [Concomitant]
  7. ASCORBIC ACID [Concomitant]
  8. VITAMIN D12 [Concomitant]
  9. PAXIL [Concomitant]

REACTIONS (2)
  - COMPLETED SUICIDE [None]
  - INCORRECT DOSE ADMINISTERED [None]
